FAERS Safety Report 24072061 (Version 1)
Quarter: 2024Q3

REPORT INFORMATION
  Report Type: Spontaneous
  Country: US (occurrence: US)
  Receive Date: 20240710
  Receipt Date: 20240710
  Transmission Date: 20241016
  Serious: No
  Sender: CHATTEM
  Company Number: US-OPELLA-2024OHG023109

PATIENT

DRUGS (7)
  1. XYZAL [Suspect]
     Active Substance: LEVOCETIRIZINE DIHYDROCHLORIDE
     Indication: Urticaria
  2. PEPCID [Concomitant]
     Active Substance: FAMOTIDINE
     Indication: Urticaria
  3. HYDROXYZINE [Concomitant]
     Active Substance: HYDROXYZINE HYDROCHLORIDE
     Indication: Urticaria
  4. PREDNISONE [Concomitant]
     Active Substance: PREDNISONE
     Indication: Urticaria
     Dosage: LOW DOSE
  5. ZINC [Concomitant]
     Active Substance: ZINC
     Indication: Mineral supplementation
  6. COPPER [Concomitant]
     Active Substance: COPPER
     Indication: Supplementation therapy
  7. QUERCITIN [Concomitant]
     Indication: Supplementation therapy

REACTIONS (2)
  - Drug ineffective [Unknown]
  - No adverse event [Unknown]
